FAERS Safety Report 6973243-0 (Version None)
Quarter: 2010Q3

REPORT INFORMATION
  Report Type: 
  Country: None (occurrence: None)
  Receive Date: 20100909
  Receipt Date: 20100831
  Transmission Date: 20110219
  Serious: Yes (Other)
  Sender: FDA-Public Use
  Company Number: US-ROCHE-725107

PATIENT
  Sex: Female

DRUGS (3)
  1. HERCEPTIN [Suspect]
     Dosage: LOADING DOSE
     Route: 065
  2. HERCEPTIN [Suspect]
     Route: 065
  3. TAXOL [Concomitant]

REACTIONS (2)
  - EJECTION FRACTION DECREASED [None]
  - METASTATIC NEOPLASM [None]
